FAERS Safety Report 7319772-1 (Version None)
Quarter: 2011Q1

REPORT INFORMATION
  Report Type: 
  Country: None (occurrence: None)
  Receive Date: 20110228
  Receipt Date: 20100914
  Transmission Date: 20110831
  Serious: No
  Sender: FDA-Public Use
  Company Number: A0881881A

PATIENT
  Age: 45 Year
  Sex: Female

DRUGS (1)
  1. LAMICTAL [Suspect]
     Dosage: 200MG UNKNOWN
     Route: 048
     Dates: start: 20061013, end: 20100813

REACTIONS (2)
  - FEELING ABNORMAL [None]
  - ADVERSE DRUG REACTION [None]
